FAERS Safety Report 25250412 (Version 1)
Quarter: 2025Q2

REPORT INFORMATION
  Report Type: Spontaneous
  Country: DK (occurrence: DK)
  Receive Date: 20250429
  Receipt Date: 20250429
  Transmission Date: 20250716
  Serious: Yes (Life-Threatening, Hospitalization)
  Sender: BAYER HEALTHCARE PHARMACEUTICALS INC.
  Company Number: DK-Nycomed-0200761

PATIENT
  Age: 62 Year
  Sex: Male

DRUGS (16)
  1. CIPROFLOXACIN [Suspect]
     Active Substance: CIPROFLOXACIN
     Indication: Pyrexia
     Dosage: CUMULATIVE DOSE 3200 MG
     Dates: start: 20080430, end: 20080503
  2. PANTOPRAZOLE [Suspect]
     Active Substance: PANTOPRAZOLE
     Indication: Abdominal pain
     Route: 048
     Dates: start: 20080428, end: 20080507
  3. PANTOPRAZOLE [Suspect]
     Active Substance: PANTOPRAZOLE
     Indication: Abdominal pain
     Dosage: 40 MG, QD
     Route: 048
     Dates: start: 20080527, end: 20080530
  4. LANSOPRAZOLE [Suspect]
     Active Substance: LANSOPRAZOLE
     Indication: Gastric ulcer
     Dosage: 30 MG, BID
     Route: 048
     Dates: start: 20080507, end: 20080523
  5. LANSOPRAZOLE [Suspect]
     Active Substance: LANSOPRAZOLE
     Indication: Gastric ulcer
     Dosage: 30 MG, 2X PER DAY
     Route: 048
     Dates: start: 20080507, end: 20080523
  6. MEROPENEM [Suspect]
     Active Substance: MEROPENEM
     Indication: Pyrexia
     Dosage: 1000 MILLIGRAM(S)
     Route: 042
     Dates: start: 20080511, end: 20080516
  7. MEROPENEM [Suspect]
     Active Substance: MEROPENEM
     Indication: Pyrexia
     Dosage: 1000 MG, 3X PER DAY
     Route: 042
     Dates: start: 20080511, end: 20080516
  8. FLUCONAZOLE [Suspect]
     Active Substance: FLUCONAZOLE
     Indication: Pyrexia
     Dosage: CUMULATIVE DOSE 4200 MG
     Dates: start: 20080429, end: 20080519
  9. B-Combin [Concomitant]
     Indication: Hypovitaminosis
     Dosage: 1 DF, TID
     Route: 065
     Dates: start: 20080508
  10. B-Combin [Concomitant]
     Indication: Hypovitaminosis
     Dates: start: 20080508
  11. THIAMINE [Concomitant]
     Active Substance: THIAMINE
     Indication: Hypovitaminosis
     Dosage: 300 MG, QD
     Route: 048
     Dates: start: 20080428
  12. THIAMINE [Concomitant]
     Active Substance: THIAMINE
     Indication: Hypovitaminosis
     Dosage: 300 MG, 1X PER DAY
     Route: 048
     Dates: start: 20080428
  13. ZINACEF [Concomitant]
     Active Substance: CEFUROXIME SODIUM
     Indication: Pyrexia
     Route: 030
     Dates: start: 20080428, end: 20080430
  14. ZINACEF [Concomitant]
     Active Substance: CEFUROXIME SODIUM
     Indication: Pyrexia
     Route: 030
     Dates: start: 20080430, end: 20080510
  15. ZINACEF [Concomitant]
     Active Substance: CEFUROXIME SODIUM
     Indication: Pyrexia
     Dosage: 1500 MG, 3X PER DAY
     Route: 030
     Dates: start: 20080428, end: 20080430
  16. CEFUROXIME [Concomitant]
     Active Substance: CEFUROXIME
     Indication: Pyrexia
     Dates: start: 20080430, end: 20080510

REACTIONS (4)
  - Toxic epidermal necrolysis [Recovered/Resolved]
  - Pain in extremity [Recovered/Resolved]
  - Paraesthesia [Recovered/Resolved]
  - Tremor [Recovered/Resolved]

NARRATIVE: CASE EVENT DATE: 20080525
